FAERS Safety Report 4600669-2 (Version None)
Quarter: 2005Q1

REPORT INFORMATION
  Report Type: 
  Country: None (occurrence: None)
  Receive Date: 20050304
  Receipt Date: 20050216
  Transmission Date: 20050727
  Serious: Yes (Other)
  Sender: FDA-Public Use
  Company Number: DSA_26026_2005

PATIENT
  Age: 66 Year
  Sex: Female

DRUGS (2)
  1. ENALAPRIL MALEATE [Suspect]
     Indication: TACHYCARDIA PAROXYSMAL
     Dosage: 5 MG Q DAY PO
     Route: 048
     Dates: start: 20041113, end: 20041113
  2. AMIODARONE HYDROCHLORIDE [Suspect]
     Indication: TACHYCARDIA PAROXYSMAL
     Dosage: DF UNK IV
     Route: 042
     Dates: start: 20041104, end: 20041104

REACTIONS (10)
  - ASTHENIA [None]
  - DRUG HYPERSENSITIVITY [None]
  - DRY MOUTH [None]
  - DYSPNOEA [None]
  - MALAISE [None]
  - NERVOUSNESS [None]
  - PALLOR [None]
  - PALPITATIONS [None]
  - PARAESTHESIA [None]
  - TACHYPNOEA [None]
